FAERS Safety Report 21203383 (Version 1)
Quarter: 2022Q3

REPORT INFORMATION
  Report Type: Spontaneous
  Country: PT (occurrence: PT)
  Receive Date: 20220811
  Receipt Date: 20220811
  Transmission Date: 20221027
  Serious: Yes (Other)
  Sender: FDA-Public Use
  Company Number: PT-AMGEN-PRTSP2022135817

PATIENT
  Age: 40 Year
  Sex: Female

DRUGS (5)
  1. TRASTUZUMAB [Suspect]
     Active Substance: TRASTUZUMAB
     Indication: HER2 positive breast cancer
     Dosage: UNK
     Route: 065
     Dates: start: 2020
  2. FULVESTRANT [Concomitant]
     Active Substance: FULVESTRANT
  3. DOCETAXEL [Concomitant]
     Active Substance: DOCETAXEL
  4. PERTUZUMAB [Concomitant]
     Active Substance: PERTUZUMAB
  5. LETROZOLE [Concomitant]
     Active Substance: LETROZOLE
     Dosage: UNK
     Dates: start: 202006

REACTIONS (2)
  - Breast cancer metastatic [Unknown]
  - Therapeutic product effect incomplete [Unknown]
